FAERS Safety Report 12355791 (Version 4)
Quarter: 2017Q2

REPORT INFORMATION
  Report Type: Report from Study
  Country: None (occurrence: FR)
  Receive Date: 20160511
  Receipt Date: 20170623
  Transmission Date: 20170830
  Serious: Yes (Hospitalization)
  Sender: FDA-Public Use
  Company Number: FR-ABBVIE-16P-056-1596672-00

PATIENT
  Age: 74 Year
  Sex: Female
  Weight: 58.7 kg

DRUGS (64)
  1. DOXORUBICIN [Suspect]
     Active Substance: DOXORUBICIN
     Indication: NON-HODGKIN^S LYMPHOMA
     Dosage: MOST RECENT DOSE(82 MG) PRIOR TO AE ONSET 29MAR2016 AT 21:45
     Route: 042
     Dates: start: 20160308
  2. PANTOPRAZOLE [Concomitant]
     Active Substance: PANTOPRAZOLE
     Indication: OESOPHAGITIS
     Dates: start: 20160302
  3. PRIMPERAN [Concomitant]
     Active Substance: METOCLOPRAMIDE HYDROCHLORIDE
     Indication: NAUSEA
     Dates: start: 20160303, end: 20160304
  4. PRIMPERAN [Concomitant]
     Active Substance: METOCLOPRAMIDE HYDROCHLORIDE
     Dates: start: 20160311, end: 20160311
  5. ERYTHROCYTES [Concomitant]
     Active Substance: HUMAN RED BLOOD CELL
     Indication: ANAEMIA
     Dates: start: 20160331, end: 20160401
  6. AERIUS [Concomitant]
     Active Substance: DESLORATADINE
     Indication: PREMEDICATION
     Dates: start: 20160304, end: 20160304
  7. POLARAMINE [Concomitant]
     Active Substance: DEXCHLORPHENIRAMINE MALEATE
     Indication: PREMEDICATION
     Dates: start: 20160307, end: 20160307
  8. POLARAMINE [Concomitant]
     Active Substance: DEXCHLORPHENIRAMINE MALEATE
     Dates: start: 20160420, end: 20160420
  9. ERYTHROCYTES [Concomitant]
     Active Substance: HUMAN RED BLOOD CELL
     Dates: start: 20160304, end: 20160304
  10. EPOETIN ALFA [Concomitant]
     Active Substance: ERYTHROPOIETIN
     Indication: ANAEMIA
     Dates: start: 20160511
  11. ZYLORIC [Concomitant]
     Active Substance: ALLOPURINOL
     Dates: start: 20160311, end: 20160311
  12. ERYTHROCYTES [Concomitant]
     Active Substance: HUMAN RED BLOOD CELL
     Indication: INFECTION
     Dates: start: 20160329, end: 20160329
  13. PARACETAMOL [Concomitant]
     Active Substance: ACETAMINOPHEN
     Dates: start: 20160719, end: 20160719
  14. PARACETAMOL [Concomitant]
     Active Substance: ACETAMINOPHEN
     Dates: start: 20160809, end: 20160809
  15. POLARAMINE [Concomitant]
     Active Substance: DEXCHLORPHENIRAMINE MALEATE
     Dates: start: 20160329, end: 20160329
  16. ERYTHROCYTES [Concomitant]
     Active Substance: HUMAN RED BLOOD CELL
     Indication: ANAEMIA
     Dates: start: 20160329, end: 20160329
  17. EUPANTOL [Concomitant]
     Active Substance: PANTOPRAZOLE SODIUM
     Indication: GASTRITIS
     Dates: start: 20160602
  18. VINCRISTINE [Suspect]
     Active Substance: VINCRISTINE
     Indication: NON-HODGKIN^S LYMPHOMA
     Dosage: MOST RECENT DOSE(2 MG) PRIOR TO AE ONSET 29MAR2016 AT 23:00
     Route: 042
     Dates: start: 20160308
  19. HEXTRIL [Concomitant]
     Indication: ORAL INFECTION
     Dates: start: 20160302
  20. ERYTHROCYTES [Concomitant]
     Active Substance: HUMAN RED BLOOD CELL
     Dates: start: 20160304, end: 20160304
  21. PARACETAMOL [Concomitant]
     Active Substance: ACETAMINOPHEN
     Dates: start: 20160511, end: 20160511
  22. POLARAMINE [Concomitant]
     Active Substance: DEXCHLORPHENIRAMINE MALEATE
     Dates: start: 20160809, end: 20160809
  23. GRANOCYTE [Concomitant]
     Active Substance: LENOGRASTIM
     Dates: start: 20160317, end: 20160322
  24. GRANOCYTE [Concomitant]
     Active Substance: LENOGRASTIM
     Dates: start: 20160426, end: 20160502
  25. GRANOCYTE [Concomitant]
     Active Substance: LENOGRASTIM
     Dates: start: 20160725, end: 20160731
  26. GRANOCYTE [Concomitant]
     Active Substance: LENOGRASTIM
     Dates: start: 20160815, end: 20160821
  27. GRANOCYTE [Concomitant]
     Active Substance: LENOGRASTIM
     Dates: start: 20160716, end: 20160718
  28. ZOPHREN [Concomitant]
     Active Substance: ONDANSETRON
     Indication: NAUSEA
     Dates: start: 20160309, end: 20160313
  29. POTASSIUM CHLORIDE. [Concomitant]
     Active Substance: POTASSIUM CHLORIDE
     Indication: HYPOKALAEMIA
     Dates: start: 20160624, end: 20160704
  30. LOVENOX [Concomitant]
     Active Substance: ENOXAPARIN SODIUM
     Indication: PULMONARY EMBOLISM
     Dates: start: 20160226
  31. ZYLORIC [Concomitant]
     Active Substance: ALLOPURINOL
     Indication: TUMOUR LYSIS SYNDROME
     Dates: start: 20160303, end: 20160304
  32. PARACETAMOL [Concomitant]
     Active Substance: ACETAMINOPHEN
     Dates: start: 20160601, end: 20160601
  33. POLARAMINE [Concomitant]
     Active Substance: DEXCHLORPHENIRAMINE MALEATE
     Dates: start: 20160511, end: 20160511
  34. GRANOCYTE [Concomitant]
     Active Substance: LENOGRASTIM
     Dates: start: 20160622, end: 20160623
  35. SOLUPRED [Concomitant]
     Active Substance: PREDNISOLONE
     Indication: LYMPHOMA
     Dates: start: 20160303, end: 20160307
  36. CLARITHROMYCINE [Concomitant]
     Active Substance: CLARITHROMYCIN
     Indication: GASTRITIS
     Dates: start: 20160607, end: 20160611
  37. AMPHOTERICINE B [Concomitant]
     Active Substance: AMPHOTERICIN B
     Indication: MUCOSAL INFLAMMATION
     Dates: start: 201605, end: 201605
  38. PREDNISONE. [Suspect]
     Active Substance: PREDNISONE
     Indication: NON-HODGKIN^S LYMPHOMA
     Dosage: MOST RECENT DOSE (100 M) PRIOR TO AE ONSET 01APR2016
     Route: 048
     Dates: start: 20160307
  39. RENITEC [Concomitant]
     Active Substance: ENALAPRIL MALEATE
     Indication: HYPERTENSION
  40. SODIUM BICARBONATE. [Concomitant]
     Active Substance: SODIUM BICARBONATE
     Indication: ORAL INFECTION
     Dates: start: 20160302
  41. POLARAMINE [Concomitant]
     Active Substance: DEXCHLORPHENIRAMINE MALEATE
     Dates: start: 20160627, end: 20160627
  42. POLARAMINE [Concomitant]
     Active Substance: DEXCHLORPHENIRAMINE MALEATE
     Dates: start: 20160719, end: 20160719
  43. EDUCTYL [Concomitant]
     Active Substance: POTASSIUM BITARTRATE\SODIUM BICARBONATE
     Indication: CONSTIPATION
     Dates: start: 20160401, end: 20160403
  44. GRANOCYTE [Concomitant]
     Active Substance: LENOGRASTIM
     Dates: start: 20160703, end: 20160709
  45. PARACETAMOL [Concomitant]
     Active Substance: ACETAMINOPHEN
     Dates: start: 20160420, end: 20160420
  46. POLARAMINE [Concomitant]
     Active Substance: DEXCHLORPHENIRAMINE MALEATE
     Dates: start: 20160601, end: 20160601
  47. ERYTHROCYTES [Concomitant]
     Active Substance: HUMAN RED BLOOD CELL
     Indication: INFECTION
     Dates: start: 20160331, end: 20160401
  48. INNOHEP [Concomitant]
     Active Substance: TINZAPARIN SODIUM
     Indication: THROMBOSIS
     Dates: start: 20160314
  49. GRANOCYTE [Concomitant]
     Active Substance: LENOGRASTIM
     Dates: start: 20160803, end: 20160826
  50. AMOXICILLINE [Concomitant]
     Active Substance: AMOXICILLIN
     Indication: GASTRITIS
     Dates: start: 20160602, end: 20160606
  51. VENETOCLAX [Suspect]
     Active Substance: VENETOCLAX
     Indication: NON-HODGKIN^S LYMPHOMA
     Dosage: MOST RECENT DOSE (800 MG) PRIOR TO AE ONSET 30MAR2016
     Route: 048
     Dates: start: 20160310
  52. FASTURTEC [Concomitant]
     Active Substance: RASBURICASE
     Indication: TUMOUR LYSIS SYNDROME
     Dates: start: 20160307, end: 20160307
  53. PARACETAMOL [Concomitant]
     Active Substance: ACETAMINOPHEN
     Indication: PREMEDICATION
     Dates: start: 20160307, end: 20160307
  54. GRANOCYTE [Concomitant]
     Active Substance: LENOGRASTIM
     Indication: NEUTROPENIA
     Dates: start: 20160404, end: 20160410
  55. GRANOCYTE [Concomitant]
     Active Substance: LENOGRASTIM
     Dates: start: 20160517, end: 20160523
  56. FORTIMEL [Concomitant]
     Active Substance: DIETARY SUPPLEMENT
     Indication: WEIGHT DECREASED
     Dates: start: 20160601, end: 20161109
  57. RITUXIMAB [Suspect]
     Active Substance: RITUXIMAB
     Indication: NON-HODGKIN^S LYMPHOMA
     Dosage: MOST RECENT DOSE (615 MG) PRIOR TO AE ONSET 29MAR2016 AT 20:00
     Route: 042
     Dates: start: 20160307
  58. CYCLOPHOSPHAMIDE. [Suspect]
     Active Substance: CYCLOPHOSPHAMIDE
     Indication: NON-HODGKIN^S LYMPHOMA
     Dosage: MOST RECENT DOSE(1230 MG) PRIOR TO AE ONSET 29MAR2016 AT 20:00
     Route: 042
     Dates: start: 20160308
  59. PARACETAMOL [Concomitant]
     Active Substance: ACETAMINOPHEN
     Dates: start: 20160329, end: 20160329
  60. PARACETAMOL [Concomitant]
     Active Substance: ACETAMINOPHEN
     Dates: start: 20160627, end: 20160627
  61. PARACETAMOL [Concomitant]
     Active Substance: ACETAMINOPHEN
     Dates: start: 20160510, end: 20160518
  62. LANSOYL [Concomitant]
     Active Substance: MINERAL OIL
     Indication: CONSTIPATION
     Dates: start: 20160304, end: 20160403
  63. XANAX [Concomitant]
     Active Substance: ALPRAZOLAM
     Indication: ANXIETY
     Dates: start: 20160511
  64. METRONIDAZOLE. [Concomitant]
     Active Substance: METRONIDAZOLE
     Indication: GASTRITIS
     Dates: start: 20160607, end: 20160611

REACTIONS (1)
  - Gastric ulcer [Recovering/Resolving]

NARRATIVE: CASE EVENT DATE: 20160322
